FAERS Safety Report 9971667 (Version 1)
Quarter: 2014Q1

REPORT INFORMATION
  Report Type: Report from Study
  Country: US (occurrence: US)
  Receive Date: 20140306
  Receipt Date: 20140306
  Transmission Date: 20141002
  Serious: No
  Sender: FDA-Public Use
  Company Number: US-ABBVIE-13P-163-1153584-00

PATIENT
  Age: 66 Year
  Sex: Female

DRUGS (5)
  1. HUMIRA [Suspect]
     Indication: RHEUMATOID ARTHRITIS
     Dates: start: 201211
  2. METHOTREXATE [Suspect]
     Indication: RHEUMATOID ARTHRITIS
     Dosage: 4 TABS WEEKLY
  3. THEOPHYLLINE [Concomitant]
     Indication: ASTHMA
  4. DIOVON [Concomitant]
     Indication: BLOOD PRESSURE
  5. ALBUTEROL INHALER [Concomitant]
     Indication: ASTHMA

REACTIONS (2)
  - Asthma [Recovering/Resolving]
  - Sinusitis [Recovering/Resolving]
